FAERS Safety Report 4604619-4 (Version None)
Quarter: 2005Q1

REPORT INFORMATION
  Report Type: 
  Country: None (occurrence: None)
  Receive Date: 20050224
  Receipt Date: 20041116
  Transmission Date: 20050727
  Serious: No
  Sender: FDA-Public Use
  Company Number: SU-2004-002839

PATIENT
  Age: 55 Year
  Sex: Male
  Weight: 93.8946 kg

DRUGS (4)
  1. BENICAR [Suspect]
     Indication: HYPERTENSION
     Dosage: 20 MG QD PO
     Route: 048
     Dates: start: 20040805, end: 20041019
  2. LIPITOR [Concomitant]
  3. ASPIRIN [Concomitant]
  4. NITROGLYCERIN ^PHARMACIA + UPJOHN^ [Concomitant]

REACTIONS (1)
  - ERECTILE DYSFUNCTION [None]
